FAERS Safety Report 12192009 (Version 1)
Quarter: 2016Q1

REPORT INFORMATION
  Report Type: Report from Study
  Country: US (occurrence: US)
  Receive Date: 20160318
  Receipt Date: 20160318
  Transmission Date: 20160526
  Serious: No
  Sender: FDA-Public Use
  Company Number: PHEH2016US006447

PATIENT
  Age: 27 Year
  Sex: Male

DRUGS (1)
  1. TRILEPTAL [Suspect]
     Active Substance: OXCARBAZEPINE
     Indication: SEIZURE
     Dosage: 1650 MG, BID
     Route: 048
     Dates: start: 20160314

REACTIONS (1)
  - Prescribed overdose [Recovering/Resolving]

NARRATIVE: CASE EVENT DATE: 20160314
